FAERS Safety Report 5034838-7 (Version None)
Quarter: 2006Q2

REPORT INFORMATION
  Report Type: 
  Country: None (occurrence: None)
  Receive Date: 20060509
  Receipt Date: 20050803
  Transmission Date: 20061013
  Serious: Yes (Hospitalization)
  Sender: FDA-Public Use
  Company Number: AE-805-183

PATIENT
  Age: 39 Year
  Sex: Female

DRUGS (2)
  1. LIDODERM [Suspect]
     Indication: COMPLEX REGIONAL PAIN SYNDROME
     Dosage: 3 PATCHES
  2. DURAGESIC-100 [Concomitant]

REACTIONS (1)
  - CONVULSION [None]
